FAERS Safety Report 10471789 (Version 2)
Quarter: 2014Q3

REPORT INFORMATION
  Report Type: Spontaneous
  Country: DE (occurrence: DE)
  Receive Date: 20140924
  Receipt Date: 20140924
  Transmission Date: 20150326
  Serious: Yes (Hospitalization, Other)
  Sender: FDA-Public Use
  Company Number: PHHY2014DE119131

PATIENT
  Age: 67 Year
  Sex: Male

DRUGS (10)
  1. PREDNISOLONE. [Suspect]
     Active Substance: PREDNISOLONE
     Dates: start: 20131009
  2. VINBLASTINE [Suspect]
     Active Substance: VINBLASTINE
     Dosage: 6 MG/M2 (DAY 1)
     Dates: start: 20130325
  3. DOXORUBICIN [Suspect]
     Active Substance: DOXORUBICIN
     Dosage: 50 MG/M2 (DAY 1)
     Dates: start: 20130325
  4. VINCRISTINE [Suspect]
     Active Substance: VINCRISTINE
     Dates: start: 20131009
  5. CYCLOPHOSPHAMIDE. [Concomitant]
     Active Substance: CYCLOPHOSPHAMIDE
     Dates: start: 20131009
  6. SODIUM SELENITE [Concomitant]
     Active Substance: SODIUM SELENITE
  7. PREDNISOLONE. [Suspect]
     Active Substance: PREDNISOLONE
     Dosage: 70 MG ABSOLUTE (DAYS 1-5)
     Dates: start: 20130325
  8. CHOLECALCIFEROL [Concomitant]
     Active Substance: CHOLECALCIFEROL
     Dosage: 20000 IU, BID
  9. GEMCITABINE [Suspect]
     Active Substance: GEMCITABINE\GEMCITABINE HYDROCHLORIDE
     Dosage: 800 MG/M2 (DAY 1)
     Dates: start: 20130325
  10. ETOPOSIDE. [Concomitant]
     Active Substance: ETOPOSIDE
     Dates: start: 20131009

REACTIONS (11)
  - Febrile neutropenia [Unknown]
  - Pruritus [Unknown]
  - Metastases to bone [Unknown]
  - Pneumonia [Unknown]
  - General physical health deterioration [Unknown]
  - Respiratory failure [Unknown]
  - Hodgkin^s disease [Unknown]
  - Metastases to lymph nodes [Unknown]
  - Fatigue [Unknown]
  - Weight decreased [Unknown]
  - Polyneuropathy [Unknown]
